FAERS Safety Report 7837967-5 (Version None)
Quarter: 2011Q4

REPORT INFORMATION
  Report Type: 
  Country: None (occurrence: None)
  Receive Date: 20111024
  Receipt Date: 20101027
  Transmission Date: 20120403
  Serious: No
  Sender: FDA-Public Use
  Company Number: US-ABBOTT-10P-163-0682474-00

PATIENT
  Sex: Female
  Weight: 81.72 kg

DRUGS (1)
  1. LUPRON DEPOT [Suspect]
     Indication: ENDOMETRIOSIS
     Dates: start: 20100801

REACTIONS (6)
  - FEELING ABNORMAL [None]
  - DYSPAREUNIA [None]
  - ABDOMINAL PAIN UPPER [None]
  - NAUSEA [None]
  - POLLAKIURIA [None]
  - MALAISE [None]
